FAERS Safety Report 18630214 (Version 2)
Quarter: 2021Q2

REPORT INFORMATION
  Report Type: Spontaneous
  Country: US (occurrence: US)
  Receive Date: 20201217
  Receipt Date: 20210506
  Transmission Date: 20210717
  Serious: No
  Sender: FDA-Public Use
  Company Number: US-VERTEX PHARMACEUTICALS-2020-024735

PATIENT
  Age: 44 Year
  Sex: Female
  Weight: 77 kg

DRUGS (2)
  1. TRIKAFTA [Suspect]
     Active Substance: ELEXACAFTOR\IVACAFTOR\TEZACAFTOR
     Indication: CYSTIC FIBROSIS
     Dosage: 2 ORANGE TAB (100 MG ELEXA/ 50 MG TEZA/ 75 MG IVA) AM; 1 BLUE TAB (150MG IVA) PM
     Route: 048
     Dates: start: 20200118
  2. PULMOZYME [Concomitant]
     Active Substance: DORNASE ALFA

REACTIONS (4)
  - Headache [Recovered/Resolved]
  - Incorrect dose administered [Recovered/Resolved]
  - Feeling abnormal [Recovered/Resolved]
  - COVID-19 [Recovered/Resolved]

NARRATIVE: CASE EVENT DATE: 20201118
